FAERS Safety Report 6067247-2 (Version None)
Quarter: 2009Q1

REPORT INFORMATION
  Report Type: 
  Country: None (occurrence: None)
  Receive Date: 20090205
  Receipt Date: 20090127
  Transmission Date: 20090719
  Serious: Yes (Death, Other)
  Sender: FDA-Public Use
  Company Number: BR-AVENTIS-200910455EU

PATIENT
  Sex: Female

DRUGS (4)
  1. LASIX [Suspect]
     Dosage: DOSE: 0.5 TABLETS
     Route: 048
  2. LASIX [Suspect]
     Dosage: DOSE: 2 TABLETS
     Route: 048
  3. LASIX [Suspect]
     Dosage: DOSE: 0.5 TABLETS
     Route: 048
  4. LASIX [Suspect]
     Dosage: DOSE: 2 TABLETS
     Route: 048

REACTIONS (4)
  - ANURIA [None]
  - DEATH [None]
  - INTENTIONAL DRUG MISUSE [None]
  - WEIGHT DECREASED [None]
